FAERS Safety Report 23354181 (Version 1)
Quarter: 2024Q1

REPORT INFORMATION
  Report Type: Spontaneous
  Country: US (occurrence: US)
  Receive Date: 20240101
  Receipt Date: 20240101
  Transmission Date: 20240409
  Serious: No
  Sender: FDA-Public Use
  Company Number: US-SA-SAC20231223000728

PATIENT
  Age: 87 Year
  Sex: Male

DRUGS (1)
  1. DUPIXENT [Suspect]
     Active Substance: DUPILUMAB
     Dosage: DOSE OR AMOUNT: 300MG FREQUENCY: EVERY OTHER WEEK
     Route: 058

REACTIONS (5)
  - Injection site mass [Unknown]
  - Pruritus [Unknown]
  - Wrong technique in device usage process [Unknown]
  - Eye pruritus [Unknown]
  - Dry eye [Unknown]

NARRATIVE: CASE EVENT DATE: 20231101
